FAERS Safety Report 15472981 (Version 2)
Quarter: 2021Q4

REPORT INFORMATION
  Report Type: Report from Study
  Country: CO (occurrence: CO)
  Receive Date: 20181008
  Receipt Date: 20211209
  Transmission Date: 20220303
  Serious: Yes (Other)
  Sender: FDA-Public Use
  Company Number: CO-UCBSA-2018044143

PATIENT
  Sex: Female
  Weight: 2.44 kg

DRUGS (2)
  1. LACOSAMIDE [Suspect]
     Active Substance: LACOSAMIDE
     Indication: Epilepsy
     Dosage: 200 MG, 2X/DAY (BID)
     Route: 064
     Dates: start: 2017, end: 20180507
  2. FOLIC ACID [Concomitant]
     Active Substance: FOLIC ACID
     Indication: Pregnancy
     Dosage: 1 MG, ONCE DAILY (QD)
     Route: 064
     Dates: start: 20170901, end: 20180507

REACTIONS (3)
  - Low birth weight baby [Unknown]
  - Maternal exposure during pregnancy [Unknown]
  - Maternal exposure before pregnancy [Unknown]

NARRATIVE: CASE EVENT DATE: 20170101
